FAERS Safety Report 21263337 (Version 1)
Quarter: 2022Q3

REPORT INFORMATION
  Report Type: Report from Study
  Country: BE (occurrence: BE)
  Receive Date: 20220829
  Receipt Date: 20220829
  Transmission Date: 20221026
  Serious: Yes (Death, Hospitalization, Other)
  Sender: FDA-Public Use
  Company Number: BE-ATLANTIDE PHARMACEUTICALS AG-2022ATL000072

PATIENT
  Age: 38 Year
  Sex: Female

DRUGS (2)
  1. VENLAFAXINE [Suspect]
     Active Substance: VENLAFAXINE HYDROCHLORIDE
     Indication: Depression
     Dosage: 4200 MILLIGRAM
     Route: 065
  2. ALCOHOL [Concomitant]
     Active Substance: ALCOHOL
     Indication: Depression
     Dosage: UNK
     Route: 065

REACTIONS (10)
  - Acute respiratory distress syndrome [Fatal]
  - Acute kidney injury [Unknown]
  - Overdose [Unknown]
  - Liver injury [Unknown]
  - Atrial fibrillation [Recovering/Resolving]
  - Pneumococcal sepsis [Unknown]
  - Pneumonia [Fatal]
  - Cardiac failure acute [Recovering/Resolving]
  - Rhabdomyolysis [Unknown]
  - Serotonin syndrome [Unknown]
